FAERS Safety Report 5233500-5 (Version None)
Quarter: 2007Q1

REPORT INFORMATION
  Report Type: 
  Country: None (occurrence: None)
  Receive Date: 20070206
  Receipt Date: 20070126
  Transmission Date: 20070707
  Serious: Yes (Hospitalization)
  Sender: FDA-Public Use
  Company Number: 235659

PATIENT
  Sex: Female

DRUGS (11)
  1. XOLAIR [Suspect]
     Indication: ASTHMA
     Dosage: SEE IMAGE
     Route: 058
     Dates: end: 20051001
  2. XOLAIR [Suspect]
     Indication: ASTHMA
     Dosage: SEE IMAGE
     Route: 058
     Dates: start: 20050101
  3. CORTICOSTEROID (UNK INGREDIENTS) (CORTICOSTEROID NOS) [Concomitant]
  4. SYMBICORT [Concomitant]
  5. ATROVENT [Concomitant]
  6. NASONEX [Concomitant]
  7. THEOPHYLLINE [Concomitant]
  8. SINGULAIR [Concomitant]
  9. OXYGEN (OXYGEN) [Concomitant]
  10. BRICANYL [Concomitant]
  11. MEDROL [Concomitant]

REACTIONS (4)
  - ASTHMA [None]
  - CONDITION AGGRAVATED [None]
  - THERAPEUTIC RESPONSE DECREASED [None]
  - WEIGHT INCREASED [None]
